FAERS Safety Report 8764226 (Version 2)
Quarter: 2012Q4

REPORT INFORMATION
  Report Type: Report from Study
  Country: US (occurrence: US)
  Receive Date: 20120827
  Receipt Date: 20121029
  Transmission Date: 20130627
  Serious: Yes (Hospitalization)
  Sender: FDA-Public Use
  Company Number: US-ELI_LILLY_AND_COMPANY-US201208007155

PATIENT
  Age: 70 Year
  Sex: Male
  Weight: 67.12 kg

DRUGS (15)
  1. PEMETREXED [Suspect]
     Indication: HEAD AND NECK CANCER
     Dosage: 500 mg/m2, day 1 every 21 days
     Route: 042
     Dates: start: 20120418
  2. CETUXIMAB [Suspect]
     Indication: HEAD AND NECK CANCER
     Dosage: 400 mg/m2, loading dose day 1 every 21 days
     Route: 042
     Dates: start: 20120418
  3. CETUXIMAB [Suspect]
     Dosage: 250 mg/m2, weekly
     Route: 042
  4. CARBOPLATIN [Suspect]
     Indication: HEAD AND NECK CANCER
     Dosage: 5 AUC, day 1 every 21 days
     Route: 042
     Dates: start: 20120418
  5. MAG-SR [Concomitant]
     Indication: HYPOMAGNESAEMIA
     Dosage: UNK
     Dates: start: 20120523
  6. BACTRIM [Concomitant]
     Indication: NODULE
     Dosage: UNK
     Dates: start: 20120702
  7. PROMETHAZINE [Concomitant]
     Indication: NAUSEA
     Dosage: UNK
     Dates: start: 20120412
  8. MAGNESIUM OXIDE [Concomitant]
     Indication: HYPOMAGNESAEMIA
     Dosage: UNK
     Dates: start: 20120523
  9. STOMATOLOGICALS, MOUTH PREPARATIONS [Concomitant]
     Indication: MUCOSAL INFLAMMATION
     Dosage: UNK
     Dates: start: 20120516
  10. PROCRIT [Concomitant]
     Indication: ANAEMIA
     Dosage: UNK
     Dates: start: 20120502
  11. OMEPRAZOLE [Concomitant]
     Indication: REFLUX GASTRITIS
     Dosage: UNK
     Dates: start: 201112
  12. LORTAB [Concomitant]
     Indication: PAIN
     Dosage: UNK
     Dates: start: 20120409
  13. FAMOTIDINE [Concomitant]
     Indication: NAUSEA
     Dosage: UNK
     Dates: start: 201112
  14. FOLIC ACID [Concomitant]
     Indication: SUPPLEMENTATION THERAPY
     Dosage: UNK
     Dates: start: 20120412
  15. VITAMIN B12 [Concomitant]
     Indication: SUPPLEMENTATION THERAPY
     Dosage: UNK
     Dates: start: 20120412

REACTIONS (3)
  - Dehydration [Recovered/Resolved]
  - Urinary tract infection [Recovered/Resolved]
  - Thrombocytopenia [Recovered/Resolved]
